FAERS Safety Report 5771038-7 (Version None)
Quarter: 2008Q2

REPORT INFORMATION
  Report Type: 
  Country: None (occurrence: None)
  Receive Date: 20080613
  Receipt Date: 20080527
  Transmission Date: 20081010
  Serious: No
  Sender: FDA-Public Use
  Company Number: US-ABBOTT-08P-163-0453496-00

PATIENT
  Sex: Male
  Weight: 112.59 kg

DRUGS (15)
  1. HUMIRA [Suspect]
     Indication: CROHN'S DISEASE
     Route: 058
  2. LANSOPRAZOLE [Concomitant]
     Indication: GASTROOESOPHAGEAL REFLUX DISEASE
     Route: 048
  3. LANSOPRAZOLE [Concomitant]
     Indication: PEPTIC ULCER
  4. COLESTYRAMINE [Concomitant]
     Indication: CROHN'S DISEASE
     Dosage: UP TO 3 PACKS PER DAY AS NEEDED FOR DIARRHEA (UNIT DOSE)
     Route: 048
     Dates: start: 19930101
  5. MESALAMINE [Concomitant]
     Indication: CROHN'S DISEASE
     Route: 048
     Dates: start: 19930101
  6. FENOFIBRATE [Concomitant]
     Indication: BLOOD TRIGLYCERIDES INCREASED
     Route: 048
     Dates: start: 20060101
  7. TOPIRAMATE [Concomitant]
     Indication: NEUROPATHY PERIPHERAL
     Dosage: 7 PILLS A DAY/3 IN AM AND 4 AT PM (UNIT DOSE)
     Dates: start: 20020101
  8. SUCRALFATE [Concomitant]
     Indication: CROHN'S DISEASE
     Route: 048
     Dates: start: 20020101
  9. SUCRALFATE [Concomitant]
     Indication: PEPTIC ULCER
  10. MYCARDIS [Concomitant]
     Indication: HYPERTENSION
     Route: 048
     Dates: start: 20050101
  11. LORATADINE [Concomitant]
     Indication: MIGRAINE
     Route: 048
     Dates: start: 20070101
  12. AZELASTINE HCL [Concomitant]
     Indication: MIGRAINE
     Dosage: SQUIRTS (DOSAGE FORM)
     Route: 045
     Dates: start: 20070101
  13. IMMETREX [Concomitant]
     Indication: MIGRAINE
     Route: 048
     Dates: start: 20020101
  14. VITAMIN CAP [Concomitant]
     Indication: CROHN'S DISEASE
     Route: 048
     Dates: start: 19930101
  15. PAIN MEDICATION NOS [Concomitant]
     Indication: DRUG USE FOR UNKNOWN INDICATION

REACTIONS (1)
  - ACCIDENTAL EXPOSURE [None]
